FAERS Safety Report 13948583 (Version 1)
Quarter: 2017Q3

REPORT INFORMATION
  Report Type: Spontaneous
  Country: US (occurrence: US)
  Receive Date: 20170907
  Receipt Date: 20170907
  Transmission Date: 20171128
  Serious: No
  Sender: FDA-Public Use
  Company Number: None

PATIENT
  Age: 63 Year
  Sex: Female
  Weight: 63 kg

DRUGS (5)
  1. OMEPRAZOLE. [Concomitant]
     Active Substance: OMEPRAZOLE
  2. HYDROCHLOROTHIAZIDE. [Concomitant]
     Active Substance: HYDROCHLOROTHIAZIDE
  3. LOSARTAN. [Concomitant]
     Active Substance: LOSARTAN
  4. XIIDRA [Suspect]
     Active Substance: LIFITEGRAST
     Indication: DRY EYE
     Dosage: ?          QUANTITY:1 CAPSULE(S);?
     Route: 047
     Dates: start: 20170524, end: 20170531
  5. EMERGENC [Concomitant]

REACTIONS (2)
  - Eye pain [None]
  - Skin burning sensation [None]

NARRATIVE: CASE EVENT DATE: 20170524
